FAERS Safety Report 4805445-3 (Version None)
Quarter: 2005Q4

REPORT INFORMATION
  Report Type: 
  Country: None (occurrence: None)
  Receive Date: 20051018
  Receipt Date: 20051005
  Transmission Date: 20060501
  Serious: Yes (Death)
  Sender: FDA-Public Use
  Company Number: 2005122999

PATIENT
  Age: 63 Year
  Sex: Male
  Weight: 53.3 kg

DRUGS (10)
  1. VFEND [Suspect]
     Indication: FEBRILE NEUTROPENIA
     Dosage: 200 MG (100 MG, BID), INTRAVENOUS
     Route: 042
     Dates: start: 20050823, end: 20050826
  2. LOXOPROFEN (LOXOPROFEN) [Suspect]
     Indication: ILL-DEFINED DISORDER
     Dosage: 1 TABLET, ORAL
     Route: 048
     Dates: start: 20050825
  3. DICLOFENAC SODIUM [Suspect]
     Indication: ILL-DEFINED DISORDER
     Dosage: 12.5 MG, PARENTERAL
     Route: 051
     Dates: start: 20050825
  4. MICAFUNGIN (MICAFUNGIN) [Suspect]
     Indication: FEBRILE NEUTROPENIA
     Dosage: 150 MG (150 MG, QD), INTRAVENOUS
     Route: 042
     Dates: start: 20050726, end: 20050822
  5. MODACIN (CEFTAZIDIME) [Suspect]
     Indication: FEBRILE NEUTROPENIA
     Dosage: 4 GRAM (2 GRAM, BID), INTRAVENOUS
     Route: 042
     Dates: start: 20050819, end: 20050826
  6. TOBRAMYCIN SULFATE [Concomitant]
  7. VINCRISTINE [Concomitant]
  8. PIRARUBICIN (PIRARUBICIN) [Concomitant]
  9. ETOPOSIDE [Concomitant]
  10. CYCLOPHOSPHAMIDE [Concomitant]

REACTIONS (15)
  - BLOOD PRESSURE DECREASED [None]
  - BONE MARROW FAILURE [None]
  - BRAIN STEM INFARCTION [None]
  - CARDIAC ARREST [None]
  - CONVULSION [None]
  - DEPRESSED LEVEL OF CONSCIOUSNESS [None]
  - DYSKINESIA [None]
  - GAZE PALSY [None]
  - HEART RATE INCREASED [None]
  - HEPATIC FUNCTION ABNORMAL [None]
  - PUPILLARY REFLEX IMPAIRED [None]
  - RESPIRATORY ARREST [None]
  - TACHYPNOEA [None]
  - THERAPY NON-RESPONDER [None]
  - URINARY INCONTINENCE [None]
